FAERS Safety Report 21066024 (Version 1)
Quarter: 2022Q3

REPORT INFORMATION
  Report Type: Spontaneous
  Country: US (occurrence: US)
  Receive Date: 20220711
  Receipt Date: 20220711
  Transmission Date: 20221026
  Serious: No
  Sender: FDA-Public Use
  Company Number: US-PFIZER INC-202200940910

PATIENT
  Age: 79 Year
  Sex: Male
  Weight: 79.38 kg

DRUGS (1)
  1. LIPITOR [Suspect]
     Active Substance: ATORVASTATIN CALCIUM
     Dosage: 20 MG (EVERY OTHER DAY, LATER REPORTS AS MONDAYS, WEDNESDAYS AND FRIDAYS)
     Route: 048
     Dates: end: 20220701

REACTIONS (1)
  - COVID-19 [Unknown]
